FAERS Safety Report 5315584-9 (Version None)
Quarter: 2007Q2

REPORT INFORMATION
  Report Type: 
  Country: None (occurrence: None)
  Receive Date: 20070427
  Receipt Date: 20070423
  Transmission Date: 20071010
  Serious: Yes (Death)
  Sender: FDA-Public Use
  Company Number: 011368

PATIENT
  Age: 63 Year
  Sex: Female

DRUGS (1)
  1. WARFARIN SODIUM [Suspect]
     Indication: THROMBOSIS
     Dosage: 5 MG, QD, ORAL
     Route: 048
     Dates: start: 20070109, end: 20070219

REACTIONS (3)
  - ALANINE AMINOTRANSFERASE INCREASED [None]
  - LABORATORY TEST ABNORMAL [None]
  - YELLOW SKIN [None]
